FAERS Safety Report 6875137-8 (Version None)
Quarter: 2010Q3

REPORT INFORMATION
  Report Type: 
  Country: None (occurrence: None)
  Receive Date: 20100727
  Receipt Date: 20080430
  Transmission Date: 20110219
  Serious: Yes (Hospitalization, Other)
  Sender: FDA-Public Use
  Company Number: US-PFIZER INC-2006122252

PATIENT
  Sex: Male
  Weight: 86.2 kg

DRUGS (4)
  1. CELEBREX [Suspect]
     Indication: NECK PAIN
     Route: 048
     Dates: start: 20001201
  2. CELEBREX [Suspect]
     Indication: BACK PAIN
  3. VIOXX [Suspect]
     Indication: NECK PAIN
     Route: 048
     Dates: start: 20010101
  4. VIOXX [Suspect]
     Indication: BACK PAIN

REACTIONS (2)
  - CEREBROVASCULAR ACCIDENT [None]
  - MYOCARDIAL INFARCTION [None]
